FAERS Safety Report 21739701 (Version 2)
Quarter: 2023Q1

REPORT INFORMATION
  Report Type: Spontaneous
  Country: US (occurrence: US)
  Receive Date: 20221216
  Receipt Date: 20230104
  Transmission Date: 20230417
  Serious: Yes (Other)
  Sender: FDA-Public Use
  Company Number: US-BAYER-2022P027074

PATIENT
  Age: 34 Year
  Sex: Male

DRUGS (2)
  1. KOGENATE FS [Suspect]
     Active Substance: ANTIHEMOPHILIC FACTOR, HUMAN RECOMBINANT
     Indication: Haemorrhage
     Dosage: 2500/3000/5000-6000 UNITS PRN AD BY HTC FOR MINOR/MAJOR
     Dates: start: 20221127
  2. KOGENATE FS [Suspect]
     Active Substance: ANTIHEMOPHILIC FACTOR, HUMAN RECOMBINANT
     Indication: Haemorrhage
     Dosage: UNK
     Dates: start: 20221204, end: 20221204

REACTIONS (2)
  - Tendonitis [None]
  - Haemorrhage [Recovered/Resolved]
